FAERS Safety Report 18952380 (Version 1)
Quarter: 2021Q1

REPORT INFORMATION
  Report Type: Spontaneous
  Country: US (occurrence: US)
  Receive Date: 20210226
  Receipt Date: 20210226
  Transmission Date: 20210420
  Serious: Yes (Hospitalization)
  Sender: FDA-Public Use
  Company Number: None

PATIENT
  Age: 41 Year
  Sex: Female

DRUGS (4)
  1. PRASOSIN [Concomitant]
  2. LASIX [Concomitant]
     Active Substance: FUROSEMIDE
  3. AMBRISENTAN TAB 10MG [Suspect]
     Active Substance: AMBRISENTAN
     Route: 048
     Dates: start: 202002
  4. SLIDENAFIL [Concomitant]
     Active Substance: SILDENAFIL

REACTIONS (1)
  - Fluid retention [None]

NARRATIVE: CASE EVENT DATE: 20210222
